FAERS Safety Report 4470234-9 (Version None)
Quarter: 2004Q4

REPORT INFORMATION
  Report Type: 
  Country: None (occurrence: None)
  Receive Date: 20041008
  Receipt Date: 20041005
  Transmission Date: 20050328
  Serious: Yes (Hospitalization)
  Sender: FDA-Public Use
  Company Number: AU-MERCK-0410AUS00066

PATIENT
  Age: 66 Year
  Sex: Male

DRUGS (2)
  1. VIOXX [Suspect]
     Indication: OSTEOARTHRITIS
     Route: 048
     Dates: start: 20000101, end: 20041001
  2. WARFARIN [Concomitant]
     Route: 065

REACTIONS (5)
  - BLOOD GLUCOSE INCREASED [None]
  - CARDIAC FIBRILLATION [None]
  - CEREBROVASCULAR ACCIDENT [None]
  - MYOCARDIAL INFARCTION [None]
  - VISUAL DISTURBANCE [None]
